FAERS Safety Report 9341635 (Version 2)
Quarter: 2013Q2

REPORT INFORMATION
  Report Type: Spontaneous
  Country: US (occurrence: None)
  Receive Date: 20130606
  Receipt Date: 20130606
  Transmission Date: 20140414
  Serious: Yes (Other)
  Sender: FDA-Public Use
  Company Number: USA/USA/13/0029870

PATIENT
  Age: 91 Year
  Sex: Female

DRUGS (2)
  1. FAMOTIDINE [Suspect]
     Indication: ABDOMINAL PAIN UPPER
     Route: 048
     Dates: start: 201305
  2. METOPROLOL (METOPROLOL SUCCINATE) [Concomitant]

REACTIONS (1)
  - Depression [None]
